FAERS Safety Report 17575800 (Version 3)
Quarter: 2020Q2

REPORT INFORMATION
  Report Type: Spontaneous
  Country: DE (occurrence: DE)
  Receive Date: 20200324
  Receipt Date: 20200415
  Transmission Date: 20200713
  Serious: Yes (Other)
  Sender: FDA-Public Use
  Company Number: DE-PFIZER INC-2020120462

PATIENT
  Sex: Female

DRUGS (2)
  1. EXEMESTANE. [Suspect]
     Active Substance: EXEMESTANE
     Indication: BREAST CANCER FEMALE
     Dosage: UNK
     Dates: start: 201903, end: 201911
  2. EVEROLIMUS. [Suspect]
     Active Substance: EVEROLIMUS
     Indication: BREAST CANCER FEMALE
     Dosage: UNK
     Dates: start: 201903, end: 201911

REACTIONS (5)
  - Lung infiltration [Unknown]
  - Pneumonitis [Recovering/Resolving]
  - Pleural mass [Not Recovered/Not Resolved]
  - Neoplasm progression [Unknown]
  - Liver disorder [Not Recovered/Not Resolved]

NARRATIVE: CASE EVENT DATE: 201906
